FAERS Safety Report 20895909 (Version 1)
Quarter: 2022Q2

REPORT INFORMATION
  Report Type: Report from Study
  Country: US (occurrence: US)
  Receive Date: 20220531
  Receipt Date: 20220531
  Transmission Date: 20220721
  Serious: Yes (Hospitalization)
  Sender: FDA-Public Use
  Company Number: US-NOVARTISPH-NVSC2022US121540

PATIENT
  Sex: Female

DRUGS (3)
  1. ENTRESTO [Suspect]
     Active Substance: SACUBITRIL\VALSARTAN
     Indication: Chronic left ventricular failure
     Dosage: UNK
     Route: 065
     Dates: start: 20220126
  2. ENTRESTO [Suspect]
     Active Substance: SACUBITRIL\VALSARTAN
     Dosage: 2 DOSAGE FORM, BID, 24/26 MG (INCREASED DOSE TO 2 TABLETS)
     Route: 048
  3. ENTRESTO [Suspect]
     Active Substance: SACUBITRIL\VALSARTAN
     Dosage: 1 DOSAGE FORM, 24/26 MG, QD (DOSE REDUCED)
     Route: 048

REACTIONS (4)
  - Dehydration [Unknown]
  - Syncope [Recovering/Resolving]
  - Dizziness [Recovering/Resolving]
  - Inappropriate schedule of product administration [Unknown]
